FAERS Safety Report 7533034-9 (Version None)
Quarter: 2011Q2

REPORT INFORMATION
  Report Type: 
  Country: None (occurrence: None)
  Receive Date: 20110608
  Receipt Date: 20110527
  Transmission Date: 20111010
  Serious: Yes (Hospitalization)
  Sender: FDA-Public Use
  Company Number: CH-BAYER-2011-045738

PATIENT
  Age: 18 Year
  Sex: Male
  Weight: 110 kg

DRUGS (1)
  1. CIPROFLOXACIN [Suspect]
     Indication: CYSTITIS
     Dosage: UNK
     Dates: start: 20110318, end: 20110323

REACTIONS (3)
  - RENAL FAILURE ACUTE [None]
  - CELLS IN URINE [None]
  - TUBULOINTERSTITIAL NEPHRITIS [None]
